FAERS Safety Report 20552855 (Version 1)
Quarter: 2022Q1

REPORT INFORMATION
  Report Type: Spontaneous
  Country: CN (occurrence: None)
  Receive Date: 20220304
  Receipt Date: 20220304
  Transmission Date: 20220423
  Serious: Yes (Hospitalization, Other)
  Sender: FDA-Public Use
  Company Number: 2022A089415

PATIENT
  Age: 26048 Day
  Sex: Male
  Weight: 54 kg

DRUGS (11)
  1. BRILINTA [Suspect]
     Active Substance: TICAGRELOR
     Indication: Antiplatelet therapy
     Route: 048
     Dates: start: 20210530, end: 20210604
  2. BRILINTA [Suspect]
     Active Substance: TICAGRELOR
     Indication: Lipids abnormal
     Route: 048
     Dates: start: 20210530, end: 20210604
  3. BRILINTA [Suspect]
     Active Substance: TICAGRELOR
     Indication: Arteriosclerosis
     Route: 048
     Dates: start: 20210530, end: 20210604
  4. BRILINTA [Suspect]
     Active Substance: TICAGRELOR
     Indication: Blood pressure increased
     Route: 048
     Dates: start: 20210530, end: 20210604
  5. CILOSTAZOL [Suspect]
     Active Substance: CILOSTAZOL
     Indication: Antiplatelet therapy
     Route: 048
     Dates: start: 20210530, end: 20210610
  6. CILOSTAZOL [Suspect]
     Active Substance: CILOSTAZOL
     Indication: Lipids abnormal
     Route: 048
     Dates: start: 20210530, end: 20210610
  7. CILOSTAZOL [Suspect]
     Active Substance: CILOSTAZOL
     Indication: Arteriosclerosis
     Route: 048
     Dates: start: 20210530, end: 20210610
  8. CILOSTAZOL [Suspect]
     Active Substance: CILOSTAZOL
     Indication: Blood pressure increased
     Route: 048
     Dates: start: 20210530, end: 20210610
  9. CLOPIDOGREL BISULFATE [Suspect]
     Active Substance: CLOPIDOGREL BISULFATE
     Indication: Antiplatelet therapy
     Route: 048
     Dates: start: 20210605, end: 20210605
  10. CLOPIDOGREL BISULFATE [Suspect]
     Active Substance: CLOPIDOGREL BISULFATE
     Indication: Antiplatelet therapy
     Dosage: CLOPIDOGREL, FIRST DOSE LOAD OF 300 MG/DAY
     Route: 048
     Dates: start: 20210609
  11. CLOPIDOGREL BISULFATE [Suspect]
     Active Substance: CLOPIDOGREL BISULFATE
     Indication: Antiplatelet therapy
     Dosage: CLOPIDOGREL, 75 MG DAILY
     Route: 048

REACTIONS (3)
  - Anaemia [Recovering/Resolving]
  - Post procedural haemorrhage [Recovering/Resolving]
  - Puncture site pain [Recovering/Resolving]

NARRATIVE: CASE EVENT DATE: 20210604
